FAERS Safety Report 10411664 (Version 1)
Quarter: 2014Q3

REPORT INFORMATION
  Report Type: Report from Study
  Country: ZA (occurrence: ZA)
  Receive Date: 20140827
  Receipt Date: 20140827
  Transmission Date: 20150326
  Serious: Yes (Hospitalization, Other)
  Sender: FDA-Public Use
  Company Number: ZA-BAYER-2014-081364

PATIENT
  Sex: Female

DRUGS (2)
  1. BETAFERON [Suspect]
     Active Substance: INTERFERON BETA-1B
     Dosage: UNK
     Dates: start: 2005
  2. BETAFERON [Suspect]
     Active Substance: INTERFERON BETA-1B

REACTIONS (29)
  - Fatigue [None]
  - Vaginal haemorrhage [Recovered/Resolved]
  - Multiple sclerosis [Recovered/Resolved]
  - Trigeminal neuralgia [None]
  - Injection site abscess [None]
  - Epilepsy [Recovering/Resolving]
  - Influenza [None]
  - Fatigue [None]
  - Loss of consciousness [Recovering/Resolving]
  - Tooth abscess [Recovered/Resolved]
  - Gastrointestinal infection [None]
  - Injection site pain [None]
  - Myomectomy [None]
  - Wrong technique in drug usage process [None]
  - Gait disturbance [None]
  - Multiple sclerosis relapse [None]
  - Hypoaesthesia [None]
  - Injection site abscess [Recovering/Resolving]
  - Back pain [None]
  - Headache [None]
  - Muscle spasms [None]
  - Injection site pain [None]
  - Weight decreased [None]
  - Asthenia [None]
  - Injection site pain [Recovered/Resolved]
  - Multiple sclerosis [None]
  - Pain in extremity [None]
  - Blood glucose increased [None]
  - Multiple sclerosis relapse [None]

NARRATIVE: CASE EVENT DATE: 2007
